FAERS Safety Report 5288174-4 (Version None)
Quarter: 2007Q1

REPORT INFORMATION
  Report Type: 
  Country: None (occurrence: None)
  Receive Date: 20070118
  Receipt Date: 20061018
  Transmission Date: 20070707
  Serious: Yes (Other)
  Sender: FDA-Public Use
  Company Number: HQWYE386420OCT06

PATIENT
  Age: 83 Year
  Sex: Female
  Weight: 72.64 kg

DRUGS (3)
  1. ADVIL PM [Suspect]
     Indication: INSOMNIA
     Dosage: 2 CAPLETS EVERY OTHER NIGHT; ORAL
     Route: 048
     Dates: start: 20061001
  2. ADVIL PM [Suspect]
     Indication: PAIN
     Dosage: 2 CAPLETS EVERY OTHER NIGHT; ORAL
     Route: 048
     Dates: start: 20061001
  3. ZOCOR [Concomitant]

REACTIONS (1)
  - CONSTIPATION [None]
